FAERS Safety Report 10055127 (Version 3)
Quarter: 2018Q1

REPORT INFORMATION
  Report Type: Spontaneous
  Country: US (occurrence: US)
  Receive Date: 20140402
  Receipt Date: 20180205
  Transmission Date: 20180508
  Serious: Yes (Hospitalization, Other)
  Sender: FDA-Public Use
  Company Number: US-SA-2014SA019537

PATIENT
  Age: 57 Year
  Sex: Male

DRUGS (32)
  1. AUBAGIO [Suspect]
     Active Substance: TERIFLUNOMIDE
     Indication: MULTIPLE SCLEROSIS
     Route: 048
     Dates: start: 20130826
  2. TERBUTALINE [Concomitant]
     Active Substance: TERBUTALINE
     Dates: start: 20140806
  3. MONTELUKAST [Concomitant]
     Active Substance: MONTELUKAST SODIUM
     Dates: start: 20120830
  4. NYSTATIN/NEOMYCIN SULFATE/TRIAMCINOLONE ACETONIDE/GRAMICIDIN [Concomitant]
     Dates: start: 20140508
  5. COPAXONE [Concomitant]
     Active Substance: GLATIRAMER ACETATE
     Dates: start: 20120911
  6. CANASA [Concomitant]
     Active Substance: MESALAMINE
     Dates: start: 201405
  7. PEPTO-BISMOL [Concomitant]
     Active Substance: BISMUTH SUBSALICYLATE
  8. HYDROCODONE W/ACETAMINOPHEN [Concomitant]
     Active Substance: ACETAMINOPHEN\HYDROCODONE BITARTRATE
     Dates: start: 20140813
  9. GABAPENTIN. [Concomitant]
     Active Substance: GABAPENTIN
     Dates: start: 20140808
  10. MELOXICAM. [Concomitant]
     Active Substance: MELOXICAM
     Dates: start: 20140128
  11. ALBUTEROL. [Concomitant]
     Active Substance: ALBUTEROL
     Dates: start: 20131011
  12. PREDNISONE. [Concomitant]
     Active Substance: PREDNISONE
     Dates: start: 20140813
  13. TRAMADOL. [Concomitant]
     Active Substance: TRAMADOL
     Dates: start: 20140806, end: 20140909
  14. MONTELUKAST [Concomitant]
     Active Substance: MONTELUKAST SODIUM
     Dates: start: 20140806
  15. SIMVASTATIN. [Concomitant]
     Active Substance: SIMVASTATIN
     Dates: start: 20140807
  16. ADVAIR DISKUS [Concomitant]
     Active Substance: FLUTICASONE PROPIONATE\SALMETEROL XINAFOATE
     Dates: start: 20140806
  17. PHENYTOIN SODIUM. [Concomitant]
     Active Substance: PHENYTOIN SODIUM
     Dates: start: 20140719
  18. SPIRIVA [Concomitant]
     Active Substance: TIOTROPIUM BROMIDE MONOHYDRATE
     Dates: start: 20140525
  19. PROAIR HFA [Concomitant]
     Active Substance: ALBUTEROL SULFATE
     Dates: start: 20140326
  20. TAMSULOSIN [Concomitant]
     Active Substance: TAMSULOSIN
     Dates: start: 20140813
  21. PHENYTOIN SODIUM. [Concomitant]
     Active Substance: PHENYTOIN SODIUM
     Dates: start: 20140619
  22. MESALAMINE. [Concomitant]
     Active Substance: MESALAMINE
     Dosage: RECTAL SUSPENSION
     Dates: start: 20140624
  23. MELOXICAM. [Concomitant]
     Active Substance: MELOXICAM
     Dates: start: 20120830, end: 20130916
  24. ASPIRIN. [Concomitant]
     Active Substance: ASPIRIN
     Indication: HEADACHE
  25. HYDROCODONE W/ACETAMINOPHEN [Concomitant]
     Active Substance: ACETAMINOPHEN\HYDROCODONE BITARTRATE
     Dates: start: 20140808
  26. LISINOPRIL. [Concomitant]
     Active Substance: LISINOPRIL
     Dates: start: 20140813
  27. MELOXICAM. [Concomitant]
     Active Substance: MELOXICAM
     Dates: end: 20140211
  28. FENOFIBRATE. [Concomitant]
     Active Substance: FENOFIBRATE
  29. SPIRIVA [Concomitant]
     Active Substance: TIOTROPIUM BROMIDE MONOHYDRATE
  30. DIVALPROEX SODIUM. [Concomitant]
     Active Substance: DIVALPROEX SODIUM
     Dates: start: 20140806
  31. IBUPROFEN. [Concomitant]
     Active Substance: IBUPROFEN
     Dates: start: 20140806
  32. BETAMETHASONE. [Concomitant]
     Active Substance: BETAMETHASONE
     Dates: start: 20140609

REACTIONS (5)
  - Fall [Not Recovered/Not Resolved]
  - Colitis ulcerative [Recovered/Resolved]
  - Movement disorder [Not Recovered/Not Resolved]
  - Diarrhoea [Recovered/Resolved]
  - Weight decreased [Recovered/Resolved]

NARRATIVE: CASE EVENT DATE: 201401
